FAERS Safety Report 5202370-3 (Version None)
Quarter: 2007Q1

REPORT INFORMATION
  Report Type: 
  Country: None (occurrence: None)
  Receive Date: 20070109
  Receipt Date: 20061227
  Transmission Date: 20070707
  Serious: Yes (Hospitalization, Other)
  Sender: FDA-Public Use
  Company Number: PHBS2006JP15230

PATIENT
  Age: 58 Year
  Sex: Male

DRUGS (2)
  1. GLEEVEC [Suspect]
     Indication: CHRONIC EOSINOPHILIC LEUKAEMIA
     Dosage: 100 MG/DAY
     Route: 048
     Dates: start: 20060101
  2. GLEEVEC [Suspect]
     Route: 048

REACTIONS (13)
  - BASILAR ARTERY STENOSIS [None]
  - BLOOD CREATININE INCREASED [None]
  - C-REACTIVE PROTEIN INCREASED [None]
  - CEREBRAL ARTERY EMBOLISM [None]
  - CSF CELL COUNT INCREASED [None]
  - DIARRHOEA [None]
  - DISORIENTATION [None]
  - EOSINOPHILIA [None]
  - INFARCTION [None]
  - MENINGOENCEPHALITIS HERPETIC [None]
  - PYREXIA [None]
  - RENAL DISORDER [None]
  - VOMITING [None]
